FAERS Safety Report 5134339-1 (Version None)
Quarter: 2006Q4

REPORT INFORMATION
  Report Type: 
  Country: None (occurrence: None)
  Receive Date: 20060831
  Receipt Date: 20050927
  Transmission Date: 20070319
  Serious: No
  Sender: FDA-Public Use
  Company Number: 246547

PATIENT
  Age: 78 Year
  Sex: Male
  Weight: 105.2 kg

DRUGS (2)
  1. NOVOLIN N [Suspect]
     Indication: INSULIN-REQUIRING TYPE II DIABETES MELLITUS
     Dosage: 35 IU, BID, SUBCUTANEOUS
     Route: 058
     Dates: start: 19850101
  2. NOVOLIN R [Suspect]
     Indication: INSULIN-REQUIRING TYPE II DIABETES MELLITUS
     Dosage: 35 IU, BID, SUBCUTANEOUS
     Route: 058
     Dates: start: 19850101

REACTIONS (1)
  - HYPOGLYCAEMIA [None]
